FAERS Safety Report 9060752 (Version 1)
Quarter: 2013Q1

REPORT INFORMATION
  Report Type: Spontaneous
  Country: DE (occurrence: DE)
  Receive Date: 20130204
  Receipt Date: 20130204
  Transmission Date: 20140127
  Serious: Yes (Life-Threatening)
  Sender: FDA-Public Use
  Company Number: DE-JNJFOC-20130200851

PATIENT
  Sex: Female

DRUGS (5)
  1. YONDELIS [Suspect]
     Indication: OVARIAN CANCER
     Dosage: CYCLE 2
     Route: 042
     Dates: start: 20121211
  2. YONDELIS [Suspect]
     Indication: OVARIAN CANCER
     Route: 042
     Dates: start: 20130102
  3. YONDELIS [Suspect]
     Indication: OVARIAN CANCER
     Dosage: CYCLE 1
     Route: 042
     Dates: start: 20121120
  4. CAELYX [Suspect]
     Indication: OVARIAN CANCER
     Dosage: CYCLE 3
     Route: 042
     Dates: start: 20130102
  5. CAELYX [Suspect]
     Indication: OVARIAN CANCER
     Dosage: CYCLE 1-2
     Route: 042
     Dates: start: 20121120

REACTIONS (1)
  - Pancytopenia [Recovering/Resolving]
